FAERS Safety Report 12434310 (Version 1)
Quarter: 2016Q2

REPORT INFORMATION
  Report Type: Report from Study
  Country: US (occurrence: US)
  Receive Date: 20160603
  Receipt Date: 20160603
  Transmission Date: 20160815
  Serious: Yes (Hospitalization)
  Sender: FDA-Public Use
  Company Number: US-GILEAD-2016-0210730

PATIENT
  Age: 33 Year
  Sex: Female

DRUGS (2)
  1. SOFOSBUVIR [Suspect]
     Active Substance: SOFOSBUVIR
     Indication: HEPATITIS C
     Dosage: 1 DF, QD
     Route: 048
     Dates: start: 20160304, end: 20160525
  2. DAKLINZA [Concomitant]
     Active Substance: DACLATASVIR
     Indication: HEPATITIS C
     Dosage: 1 DF, QD
     Route: 048
     Dates: start: 20160304, end: 20160525

REACTIONS (11)
  - Depression [Unknown]
  - Dyspnoea [Unknown]
  - Eye pain [Unknown]
  - Anxiety [Unknown]
  - Headache [Unknown]
  - Confusional state [Unknown]
  - Activities of daily living impaired [Unknown]
  - Paranoia [Unknown]
  - Mental status changes [Unknown]
  - Panic attack [Unknown]
  - Speech disorder [Unknown]

NARRATIVE: CASE EVENT DATE: 201603
